FAERS Safety Report 5834519-3 (Version None)
Quarter: 2008Q3

REPORT INFORMATION
  Report Type: 
  Country: None (occurrence: None)
  Receive Date: 20080805
  Receipt Date: 20080728
  Transmission Date: 20090109
  Serious: Yes (Other)
  Sender: FDA-Public Use
  Company Number: US-ASTRAZENECA-2006UW22943

PATIENT
  Age: 43 Year
  Sex: Female
  Weight: 90.7 kg

DRUGS (13)
  1. SEROQUEL [Suspect]
     Indication: SCHIZOPHRENIA
     Dosage: 700 MG TO 800 MG
     Route: 048
     Dates: end: 20040101
  2. SEROQUEL [Suspect]
     Indication: BIPOLAR DISORDER
     Dosage: 700 MG TO 800 MG
     Route: 048
     Dates: end: 20040101
  3. SEROQUEL [Suspect]
     Indication: DEPRESSION
     Dosage: 700 MG TO 800 MG
     Route: 048
     Dates: end: 20040101
  4. CLOZARIL [Concomitant]
     Dates: start: 20020101
  5. GEODON [Concomitant]
     Dates: start: 20000101, end: 20020101
  6. HALDOL [Concomitant]
  7. NAVANE [Concomitant]
  8. RISPERDAL [Concomitant]
  9. STELAZINE [Concomitant]
  10. THORAZINE [Concomitant]
     Dosage: 400-500 MG
  11. ZYPREXA [Concomitant]
  12. PROLIXIN [Concomitant]
     Dosage: 20 MG AT NIGHT, 1.5 MG MORNING
  13. KLONOPIN [Concomitant]
     Dosage: ONE MORNING AND ONE NIGHT

REACTIONS (2)
  - HEPATITIS [None]
  - TYPE 1 DIABETES MELLITUS [None]
